FAERS Safety Report 6971921-0 (Version None)
Quarter: 2010Q3

REPORT INFORMATION
  Report Type: 
  Country: None (occurrence: None)
  Receive Date: 20100908
  Receipt Date: 20100908
  Transmission Date: 20110219
  Serious: Yes (Other)
  Sender: FDA-Public Use
  Company Number: None

PATIENT
  Age: 63 Year
  Sex: Male
  Weight: 81.6475 kg

DRUGS (1)
  1. TRIAMCINOLONE ACETONIDE [Suspect]
     Indication: ORAL DISORDER
     Dosage: THIN LAYER 4 TIMES PER DAY TOP
     Route: 061
     Dates: start: 20100820, end: 20100821

REACTIONS (6)
  - DECREASED APPETITE [None]
  - GINGIVAL DISORDER [None]
  - GLOSSODYNIA [None]
  - ORAL DISCOMFORT [None]
  - TONGUE DISORDER [None]
  - WEIGHT DECREASED [None]
